FAERS Safety Report 23581727 (Version 6)
Quarter: 2024Q2

REPORT INFORMATION
  Report Type: Spontaneous
  Country: PL (occurrence: PL)
  Receive Date: 20240229
  Receipt Date: 20240419
  Transmission Date: 20240716
  Serious: Yes (Hospitalization, Other)
  Sender: FDA-Public Use
  Company Number: None

PATIENT
  Age: 41 Year
  Sex: Male

DRUGS (24)
  1. SERTRALINE [Interacting]
     Active Substance: SERTRALINE HYDROCHLORIDE
     Indication: Mood altered
     Dosage: 50 MILLIGRAM, QD IN THE MORNING
     Route: 065
  2. SERTRALINE [Interacting]
     Active Substance: SERTRALINE HYDROCHLORIDE
     Indication: Affective disorder
  3. SERTRALINE [Interacting]
     Active Substance: SERTRALINE HYDROCHLORIDE
     Indication: Tearfulness
  4. SERTRALINE [Interacting]
     Active Substance: SERTRALINE HYDROCHLORIDE
     Indication: Sleep disorder
  5. SERTRALINE [Interacting]
     Active Substance: SERTRALINE HYDROCHLORIDE
     Indication: Irritability
  6. MIANSERIN [Interacting]
     Active Substance: MIANSERIN
     Indication: Mood altered
     Dosage: 30 MILLIGRAM, QD  IN THE NIGHT/AT BEDTIME
     Route: 065
  7. MIANSERIN [Interacting]
     Active Substance: MIANSERIN
     Indication: Affective disorder
  8. MIANSERIN [Interacting]
     Active Substance: MIANSERIN
     Indication: Tearfulness
  9. MIANSERIN [Interacting]
     Active Substance: MIANSERIN
     Indication: Sleep disorder
  10. MIANSERIN [Interacting]
     Active Substance: MIANSERIN
     Indication: Irritability
  11. PREGABALIN [Interacting]
     Active Substance: PREGABALIN
     Indication: Visceral pain
     Dosage: 300 MILLIGRAM, BID
     Route: 065
  12. PREGABALIN [Interacting]
     Active Substance: PREGABALIN
     Dosage: 150 MILLIGRAM, BID
     Route: 065
  13. FENTANYL [Interacting]
     Active Substance: FENTANYL\FENTANYL CITRATE
     Indication: Visceral pain
     Dosage: 200 MICROGRAM, QH
     Route: 045
  14. FENTANYL [Interacting]
     Active Substance: FENTANYL\FENTANYL CITRATE
     Indication: Breakthrough pain
     Dosage: 50 MICROGRAM, QH
     Route: 045
  15. FENTANYL [Interacting]
     Active Substance: FENTANYL\FENTANYL CITRATE
     Dosage: 100 MICROGRAM, QH
     Route: 045
  16. BUTYLSCOPOLAMINE BROMIDE [Interacting]
     Active Substance: BUTYLSCOPOLAMINE BROMIDE
     Indication: Pain
     Dosage: 10 MILLIGRAM, Q3D
     Route: 047
  17. BUTYLSCOPOLAMINE BROMIDE [Interacting]
     Active Substance: BUTYLSCOPOLAMINE BROMIDE
     Indication: Abdominal pain
  18. BUTYLSCOPOLAMINE BROMIDE [Interacting]
     Active Substance: BUTYLSCOPOLAMINE BROMIDE
     Indication: Visceral pain
  19. ACETAMINOPHEN [Interacting]
     Active Substance: ACETAMINOPHEN
     Indication: Visceral pain
     Dosage: 1000 MILLIGRAM, Q3D
     Route: 065
  20. ACETAMINOPHEN [Interacting]
     Active Substance: ACETAMINOPHEN
     Dosage: 1 GRAM, Q8H, 1 G 3 TIMES DAILY
     Route: 065
  21. FENTANYL [Interacting]
     Active Substance: FENTANYL\FENTANYL CITRATE
     Indication: Visceral pain
     Dosage: 50 MICROGRAM, QH
     Route: 062
  22. FENTANYL [Interacting]
     Active Substance: FENTANYL\FENTANYL CITRATE
     Indication: Pain prophylaxis
     Dosage: 100 MICROGRAM, QH
     Route: 062
  23. VALPROIC ACID [Interacting]
     Active Substance: VALPROIC ACID
     Indication: Pain
     Dosage: UNK
     Route: 065
  24. ACETAMINOPHEN [Concomitant]
     Active Substance: ACETAMINOPHEN
     Indication: Visceral pain
     Dosage: 1 GRAM, Q8H
     Route: 065

REACTIONS (17)
  - Neurotoxicity [Unknown]
  - Sensitisation [Recovered/Resolved]
  - Hyperaesthesia [Recovered/Resolved]
  - Abdominal pain [Recovering/Resolving]
  - Medication error [Unknown]
  - Drug interaction [Unknown]
  - Hospitalisation [Unknown]
  - Therapeutic product effect incomplete [Unknown]
  - Drug-disease interaction [Unknown]
  - Product prescribing error [Unknown]
  - Condition aggravated [Unknown]
  - Wrong product administered [Unknown]
  - Pain [Recovered/Resolved]
  - Hypersomnia [Unknown]
  - Sleep disorder [Unknown]
  - Off label use [Unknown]
  - Drug ineffective [Unknown]
